FAERS Safety Report 6153270-6 (Version None)
Quarter: 2009Q2

REPORT INFORMATION
  Report Type: 
  Country: None (occurrence: None)
  Receive Date: 20090409
  Receipt Date: 20090330
  Transmission Date: 20091009
  Serious: Yes (Death, Life-Threatening, Hospitalization)
  Sender: FDA-Public Use
  Company Number: GXKR2008DK09134

PATIENT
  Age: 77 Year
  Sex: Female
  Weight: 84.5 kg

DRUGS (10)
  1. ENALAPRIL MALEATE [Suspect]
     Indication: HYPERTENSION
     Dosage: 5 MG/DAY, ORAL
     Route: 048
     Dates: end: 20080526
  2. BIOCLAVID (NGX) (AMOXICILLIN, CLAVULANATE) TABLET, 500MG [Suspect]
     Indication: PNEUMONIA
     Dosage: 1500 MG/DAY, ORAL
     Route: 048
     Dates: start: 20080401, end: 20080502
  3. DIGOXIN ^DAK^ (DIGOXIN) [Concomitant]
  4. FURIX (FUROSEMIDE) [Concomitant]
  5. KALEORID (POTASSIUM CHLORIDE) EXTENDED RELEASE TABLET [Concomitant]
  6. MAREVAN ^NYCOMED^ (WARFARIN SODIUM) [Concomitant]
  7. SYMBICORT [Concomitant]
  8. BRICANYL [Concomitant]
  9. PREDNISOLONE [Concomitant]
  10. PANTOPRAZOLE SODIUM [Concomitant]

REACTIONS (5)
  - COMA [None]
  - HEPATITIS TOXIC [None]
  - HYPOTENSION [None]
  - JAUNDICE [None]
  - PANCREATITIS NECROTISING [None]
